FAERS Safety Report 8356694-1 (Version None)
Quarter: 2012Q2

REPORT INFORMATION
  Report Type: 
  Country: None (occurrence: None)
  Receive Date: 20120514
  Receipt Date: 20120510
  Transmission Date: 20120825
  Serious: Yes (Other)
  Sender: FDA-Public Use
  Company Number: PHHY2012CA004890

PATIENT
  Sex: Female

DRUGS (2)
  1. ANTIHYPERTENSIVES [Concomitant]
  2. SANDOSTATIN LAR [Suspect]
     Indication: ACROMEGALY
     Dosage: 40 MG, QMO
     Route: 030
     Dates: start: 20080606

REACTIONS (8)
  - CARDIOMEGALY [None]
  - INSOMNIA [None]
  - INJECTION SITE PAIN [None]
  - CHEST DISCOMFORT [None]
  - ALOPECIA [None]
  - BLOOD PRESSURE INCREASED [None]
  - HEADACHE [None]
  - FATIGUE [None]
